FAERS Safety Report 5351995-3 (Version None)
Quarter: 2007Q2

REPORT INFORMATION
  Report Type: 
  Country: None (occurrence: None)
  Receive Date: 20070611
  Receipt Date: 20070531
  Transmission Date: 20071010
  Serious: Yes (Hospitalization)
  Sender: FDA-Public Use
  Company Number: PHHO2006US17604

PATIENT
  Age: 83 Year
  Sex: Male
  Weight: 81 kg

DRUGS (10)
  1. GLEEVEC [Suspect]
     Indication: GASTROINTESTINAL STROMAL TUMOUR
     Dosage: 400 MG, BID
     Route: 048
     Dates: start: 20060915, end: 20061016
  2. ACETYLSALICYLIC ACID SRT [Concomitant]
  3. ATENOLOL [Concomitant]
  4. CIPROFLOXACIN [Concomitant]
  5. FERROUS SULFATE [Concomitant]
  6. GLYBURIDE [Concomitant]
  7. ALDACTONE [Concomitant]
  8. FLOMAX [Concomitant]
  9. VITAMIN CAP [Concomitant]
  10. RAD001 [Suspect]
     Indication: CHEMOTHERAPY MULTIPLE AGENTS SYSTEMIC
     Dosage: 2.5 MG, QD
     Route: 048
     Dates: start: 20060915, end: 20061016

REACTIONS (10)
  - ASCITES [None]
  - DIARRHOEA [None]
  - DYSPNOEA [None]
  - ELECTROLYTE IMBALANCE [None]
  - FAILURE TO THRIVE [None]
  - FLUID RETENTION [None]
  - HYPONATRAEMIA [None]
  - OEDEMA PERIPHERAL [None]
  - SCROTAL OEDEMA [None]
  - SKIN ULCER [None]
